FAERS Safety Report 9507757 (Version 3)
Quarter: 2014Q1

REPORT INFORMATION
  Report Type: Spontaneous
  Country: AU (occurrence: None)
  Receive Date: 20130905
  Receipt Date: 20140304
  Transmission Date: 20141002
  Serious: Yes (Hospitalization)
  Sender: FDA-Public Use
  Company Number: 2013MPI00510

PATIENT
  Age: 79 Year
  Sex: Male
  Weight: 59 kg

DRUGS (6)
  1. BRENTUXIMAB VEDOTIN (BRENTUXIMAB VEDOTIN) INJECTION [Suspect]
     Indication: HODGKIN^S DISEASE
     Dosage: QCYCLE
     Route: 042
     Dates: start: 20130726, end: 20130812
  2. DOXORUBICIN (DOXORUBICIN) INJECTION [Suspect]
     Indication: HODGKIN^S DISEASE
     Dosage: 43 MG, QCYCLE, INTRAVENOUS
     Route: 042
     Dates: start: 20130726, end: 20130812
  3. VINBLASTINE (VINBLASTINE SULFATE) INJECTION [Suspect]
     Indication: HODGKIN^S DISEASE
     Route: 042
     Dates: start: 20130726, end: 20130812
  4. DACARBAZINE (DACARBAZINE) INJECTION [Suspect]
     Indication: HODGKIN^S DISEASE
     Route: 042
     Dates: start: 20130716, end: 20130812
  5. METFORMIN (METFORMIN) [Concomitant]
  6. PROTOPHANE BD [Concomitant]

REACTIONS (11)
  - Hyperglycaemia [None]
  - Vomiting [None]
  - Nausea [None]
  - Diarrhoea [None]
  - Dehydration [None]
  - Febrile neutropenia [None]
  - Anaemia [None]
  - Supraventricular tachycardia [None]
  - Colitis [None]
  - Renal cyst [None]
  - Urinary tract infection [None]
